FAERS Safety Report 4894157-6 (Version None)
Quarter: 2005Q4

REPORT INFORMATION
  Report Type: 
  Country: None (occurrence: None)
  Receive Date: 20051223
  Receipt Date: 20051014
  Transmission Date: 20060501
  Serious: No
  Sender: FDA-Public Use
  Company Number: 2005PV003296

PATIENT
  Age: 36 Year
  Sex: Male
  Weight: 109.7705 kg

DRUGS (6)
  1. SYMLIN [Suspect]
     Indication: DIABETES MELLITUS INSULIN-DEPENDENT
     Dates: start: 20050601
  2. LORTAB [Concomitant]
  3. NEURONTIN [Concomitant]
  4. ACIPHEX [Concomitant]
  5. KEPPRA [Concomitant]
  6. BENICAR [Concomitant]

REACTIONS (4)
  - BACK PAIN [None]
  - CONDITION AGGRAVATED [None]
  - MUSCULOSKELETAL STIFFNESS [None]
  - WEIGHT DECREASED [None]
